FAERS Safety Report 6277866-6 (Version None)
Quarter: 2009Q3

REPORT INFORMATION
  Report Type: 
  Country: None (occurrence: None)
  Receive Date: 20090717
  Receipt Date: 20090717
  Transmission Date: 20100115
  Serious: Yes (Other)
  Sender: FDA-Public Use
  Company Number: None

PATIENT
  Sex: Female
  Weight: 77.1115 kg

DRUGS (1)
  1. LUNESTA [Suspect]
     Indication: INSOMNIA
     Dosage: 3MG AS NEEDED PO
     Route: 048
     Dates: start: 20090104, end: 20090714

REACTIONS (3)
  - ANXIETY [None]
  - HYPERHIDROSIS [None]
  - PANIC REACTION [None]
